FAERS Safety Report 5909424-4 (Version None)
Quarter: 2008Q4

REPORT INFORMATION
  Report Type: 
  Country: None (occurrence: None)
  Receive Date: 20081006
  Receipt Date: 20080924
  Transmission Date: 20090506
  Serious: Yes (Other)
  Sender: FDA-Public Use
  Company Number: JP-PFIZER INC-2008081105

PATIENT
  Age: 65 Year
  Sex: Male

DRUGS (3)
  1. METHYLPREDNISOLONE [Suspect]
     Indication: KIDNEY TRANSPLANT REJECTION
     Dates: start: 20010101
  2. TACROLIMUS MONOHYDRATE [Concomitant]
     Indication: KIDNEY TRANSPLANT REJECTION
  3. MYCOPHENOLIC ACID [Concomitant]
     Indication: KIDNEY TRANSPLANT REJECTION

REACTIONS (2)
  - DIFFUSE LARGE B-CELL LYMPHOMA [None]
  - FUNGAL INFECTION [None]
